FAERS Safety Report 8055789-X (Version None)
Quarter: 2011Q4

REPORT INFORMATION
  Report Type: 
  Country: None (occurrence: None)
  Receive Date: 20111215
  Receipt Date: 20110808
  Transmission Date: 20120403
  Serious: Yes (Other)
  Sender: FDA-Public Use
  Company Number: 1000022717

PATIENT
  Age: 79 Year
  Sex: Female

DRUGS (12)
  1. NAMENDA [Suspect]
     Indication: DEMENTIA
     Dosage: 20 MG (10 MG,2 IN 1 D),ORAL
     Route: 048
     Dates: start: 20110314, end: 20110321
  2. AMIODARONE HCL [Concomitant]
  3. DIOVAN [Concomitant]
  4. ASPIRIN [Suspect]
     Dosage: ORAL
     Route: 048
     Dates: end: 20110225
  5. NAMENDA [Suspect]
     Indication: DEMENTIA
     Dosage: 20 MG (10 MG,2 IN 1 D),ORAL
     Route: 048
     Dates: start: 20100101, end: 20110225
  6. METOPROLOL SUCCINATE [Concomitant]
  7. OMEPRAZOLE [Concomitant]
  8. NAPROXEN [Concomitant]
  9. HYDROCHLOROTHIAZIDE [Suspect]
     Dosage: ORAL
     Route: 048
     Dates: end: 20110225
  10. LEVOTHYROXINE (LEVOTHYROXINE SODIUM) (LEVOTHYROXINE SODIUM) [Concomitant]
  11. POTASSIUM (POTASSIUM) (POTASSIUM) [Concomitant]
  12. LIPITOR [Concomitant]

REACTIONS (1)
  - THROMBOCYTOPENIA [None]
